FAERS Safety Report 9192919 (Version 3)
Quarter: 2013Q4

REPORT INFORMATION
  Report Type: Spontaneous
  Country: US (occurrence: None)
  Receive Date: 20120703
  Receipt Date: 20131226
  Transmission Date: 20140711
  Serious: Yes (Other)
  Sender: FDA-Public Use
  Company Number: PHEH2012US006991

PATIENT
  Age: 41 Year
  Sex: Female
  Weight: 90.5 kg

DRUGS (1)
  1. GILENYA [Suspect]
     Indication: RELAPSING-REMITTING MULTIPLE SCLEROSIS
     Route: 048
     Dates: start: 20120312

REACTIONS (7)
  - Depressed mood [None]
  - Depression [None]
  - Somnolence [None]
  - Vision blurred [None]
  - Irritability [None]
  - Anger [None]
  - Visual acuity reduced [None]
